FAERS Safety Report 23242045 (Version 1)
Quarter: 2023Q4

REPORT INFORMATION
  Report Type: Spontaneous
  Country: US (occurrence: US)
  Receive Date: 20231129
  Receipt Date: 20231129
  Transmission Date: 20240110
  Serious: Yes (Hospitalization)
  Sender: FDA-Public Use
  Company Number: US-MYLANLABS-2023M1124804

PATIENT
  Age: 57 Year
  Sex: Male
  Weight: 115 kg

DRUGS (2)
  1. VANCOMYCIN [Suspect]
     Active Substance: VANCOMYCIN
     Indication: Staphylococcal infection
     Dosage: 3 GRAM [RECEIVED LOADING DOSE OF VANCOMYCIN 3G (26MG/KG)]
     Route: 065
  2. VANCOMYCIN [Suspect]
     Active Substance: VANCOMYCIN
     Dosage: UNK UNK, BID RECEIVED VANCOMYCIN AUC/MIC DOSING 1.5G (13MG/KG) EVERY 12 HOURS
     Route: 065

REACTIONS (1)
  - Drug ineffective [Unknown]
